FAERS Safety Report 24605242 (Version 1)
Quarter: 2024Q4

REPORT INFORMATION
  Report Type: Spontaneous
  Country: CN (occurrence: CN)
  Receive Date: 20241111
  Receipt Date: 20241111
  Transmission Date: 20250114
  Serious: Yes (Hospitalization)
  Sender: NOVARTIS
  Company Number: CN-002147023-NVSC2024CN215655

PATIENT
  Age: 50 Year
  Sex: Female
  Weight: 64 kg

DRUGS (9)
  1. CYCLOSPORINE [Suspect]
     Active Substance: CYCLOSPORINE
     Indication: Myelodysplastic syndrome
     Dosage: 0.096 G, BID (PUMP INJECTION)
     Route: 050
     Dates: start: 20241004, end: 20241006
  2. CYCLOSPORINE [Suspect]
     Active Substance: CYCLOSPORINE
     Indication: Graft versus host disease
     Dosage: 0.072 G, BID (PUMP INJECTION)
     Route: 050
     Dates: start: 20241006, end: 20241008
  3. CYCLOSPORINE [Suspect]
     Active Substance: CYCLOSPORINE
     Dosage: 0.090 G, BID (PUMP INJECTION)
     Route: 050
     Dates: start: 20241008, end: 20241010
  4. CYCLOSPORINE [Suspect]
     Active Substance: CYCLOSPORINE
     Dosage: 0.113 G, BID (PUMP INJECTION)
     Route: 050
     Dates: start: 20241010, end: 20241014
  5. CYCLOSPORINE [Suspect]
     Active Substance: CYCLOSPORINE
     Dosage: 0.141 G, BID (PUMP INJECTION)
     Route: 050
     Dates: start: 20241014, end: 20241017
  6. CYCLOSPORINE [Suspect]
     Active Substance: CYCLOSPORINE
     Dosage: 0.150 G, BID (PUMP INJECTION)
     Route: 050
     Dates: start: 20241017, end: 20241020
  7. CYCLOSPORINE [Suspect]
     Active Substance: CYCLOSPORINE
     Dosage: 0.165 G, BID (PUMP INJECTION)
     Route: 050
     Dates: start: 20241020, end: 20241021
  8. CYCLOSPORINE [Suspect]
     Active Substance: CYCLOSPORINE
     Dosage: 0.182 G, BID (PUMP INJECTION)
     Route: 050
     Dates: start: 20241021, end: 20241029
  9. SODIUM CHLORIDE [Concomitant]
     Active Substance: SODIUM CHLORIDE
     Indication: Product used for unknown indication
     Dosage: 100 ML
     Route: 065

REACTIONS (12)
  - Muscle twitching [Unknown]
  - Hypertonia [Recovered/Resolved]
  - Therapeutic response delayed [Unknown]
  - Disorganised speech [Unknown]
  - Heart rate increased [Unknown]
  - Respiratory rate increased [Unknown]
  - Blood pressure increased [Unknown]
  - Yellow skin [Unknown]
  - Pupillary reflex impaired [Unknown]
  - Trismus [Unknown]
  - Eye movement disorder [Unknown]
  - Body temperature increased [Unknown]

NARRATIVE: CASE EVENT DATE: 20241029
